FAERS Safety Report 5915672-X (Version None)
Quarter: 2008Q4

REPORT INFORMATION
  Report Type: 
  Country: None (occurrence: None)
  Receive Date: 20081010
  Receipt Date: 20080929
  Transmission Date: 20090506
  Serious: Yes (Disabling)
  Sender: FDA-Public Use
  Company Number: JP-ASTRAZENECA-2008AP07177

PATIENT
  Age: 27 Year
  Sex: Female
  Weight: 41 kg

DRUGS (9)
  1. NAROPIN [Suspect]
     Indication: EPIDURAL ANAESTHESIA
     Route: 008
     Dates: start: 20080811, end: 20080811
  2. NAROPIN [Suspect]
     Indication: ANALGESIA
     Route: 008
     Dates: start: 20080811, end: 20080811
  3. NAROPIN [Suspect]
     Route: 008
     Dates: start: 20080811, end: 20080811
  4. NAROPIN [Suspect]
     Route: 008
     Dates: start: 20080811, end: 20080811
  5. NAROPIN [Suspect]
     Route: 008
     Dates: start: 20080811, end: 20080811
  6. NAROPIN [Suspect]
     Route: 008
     Dates: start: 20080811, end: 20080811
  7. NAROPIN [Suspect]
     Dosage: GIVEN FOR 3 DAYS
     Route: 008
     Dates: start: 20080811, end: 20080813
  8. NAROPIN [Suspect]
     Dosage: GIVEN FOR 3 DAYS
     Route: 008
     Dates: start: 20080811, end: 20080813
  9. FENTANYL [Concomitant]
     Indication: EPIDURAL ANAESTHESIA
     Dosage: DOSE UNKNOWN
     Route: 008
     Dates: start: 20080811, end: 20080813

REACTIONS (1)
  - NEUROPATHY PERIPHERAL [None]
